FAERS Safety Report 20016913 (Version 1)
Quarter: 2021Q4

REPORT INFORMATION
  Report Type: Spontaneous
  Country: US (occurrence: None)
  Receive Date: 20211105
  Receipt Date: 20211105
  Transmission Date: 20220303
  Serious: No
  Sender: FDA-Public Use
  Company Number: None

PATIENT
  Age: 19 Year
  Sex: Male
  Weight: 78 kg

DRUGS (4)
  1. REMICADE [Suspect]
     Active Substance: INFLIXIMAB
     Indication: Crohn^s disease
     Dosage: OTHER FREQUENCY : EVERY 4-6 WEEKS;?
     Route: 042
     Dates: start: 20211103, end: 20211103
  2. REMICADE [Suspect]
     Active Substance: INFLIXIMAB
     Indication: Crohn^s disease
     Dosage: OTHER FREQUENCY : EVERY 4-6 WEEKS;?
     Route: 042
     Dates: start: 20211103, end: 20211103
  3. REMICADE [Concomitant]
     Active Substance: INFLIXIMAB
     Dates: start: 20211103, end: 20211103
  4. REMICADE [Concomitant]
     Active Substance: INFLIXIMAB
     Dates: start: 20211103, end: 20211103

REACTIONS (2)
  - Fatigue [None]
  - Condition aggravated [None]

NARRATIVE: CASE EVENT DATE: 20211103
